FAERS Safety Report 6156748-4 (Version None)
Quarter: 2009Q2

REPORT INFORMATION
  Report Type: 
  Country: None (occurrence: None)
  Receive Date: 20090410
  Receipt Date: 20090410
  Transmission Date: 20091009
  Serious: Yes (Other)
  Sender: FDA-Public Use
  Company Number: None

PATIENT
  Sex: Female
  Weight: 118.8424 kg

DRUGS (1)
  1. MESTINON [Suspect]

REACTIONS (2)
  - ASTHENIA [None]
  - MUSCULAR WEAKNESS [None]
